FAERS Safety Report 22269835 (Version 2)
Quarter: 2023Q2

REPORT INFORMATION
  Report Type: Spontaneous
  Country: US (occurrence: US)
  Receive Date: 20230501
  Receipt Date: 20230522
  Transmission Date: 20230722
  Serious: No
  Sender: FDA-Public Use
  Company Number: US-BAYER-2023A060125

PATIENT
  Age: 63 Year
  Sex: Female

DRUGS (2)
  1. CLARITIN [Suspect]
     Active Substance: LORATADINE
     Indication: Product used for unknown indication
  2. CLARITIN [Suspect]
     Active Substance: LORATADINE
     Indication: Product used for unknown indication

REACTIONS (1)
  - Drug ineffective [None]
